FAERS Safety Report 8281616-1 (Version None)
Quarter: 2012Q2

REPORT INFORMATION
  Report Type: 
  Country: None (occurrence: None)
  Receive Date: 20120413
  Receipt Date: 20120402
  Transmission Date: 20120825
  Serious: Yes (Hospitalization, Disabling)
  Sender: FDA-Public Use
  Company Number: US-JNJFOC-20120307186

PATIENT
  Sex: Female
  Weight: 84.82 kg

DRUGS (5)
  1. REMICADE [Suspect]
     Route: 042
     Dates: start: 20111219
  2. REMICADE [Suspect]
     Route: 042
     Dates: start: 20110912
  3. REMICADE [Suspect]
     Indication: CROHN'S DISEASE
     Route: 042
     Dates: start: 20110926
  4. REMICADE [Suspect]
     Route: 042
     Dates: end: 20120301
  5. REMICADE [Suspect]
     Route: 042
     Dates: start: 20111024

REACTIONS (1)
  - LUPUS-LIKE SYNDROME [None]
